FAERS Safety Report 16773318 (Version 1)
Quarter: 2019Q3

REPORT INFORMATION
  Report Type: Spontaneous
  Country: US (occurrence: US)
  Receive Date: 20190904
  Receipt Date: 20190904
  Transmission Date: 20191005
  Serious: No
  Sender: FDA-Public Use
  Company Number: US-PURDUE-USA-2018-0144728

PATIENT
  Age: 55 Year
  Sex: Female

DRUGS (1)
  1. OXYCODONE/ ACETAMINOPHEN TABLETS [Suspect]
     Active Substance: ACETAMINOPHEN\OXYCODONE HYDROCHLORIDE
     Indication: PROCEDURAL PAIN
     Dosage: 10 MG/ 325 MG, UNK
     Route: 048
     Dates: start: 201808

REACTIONS (7)
  - Throat irritation [Unknown]
  - Tongue discomfort [Unknown]
  - Vomiting [Unknown]
  - Inadequate analgesia [Unknown]
  - Headache [Unknown]
  - Product odour abnormal [Unknown]
  - Malaise [Unknown]

NARRATIVE: CASE EVENT DATE: 201808
